FAERS Safety Report 18394595 (Version 1)
Quarter: 2020Q4

REPORT INFORMATION
  Report Type: Spontaneous
  Country: US (occurrence: US)
  Receive Date: 20201016
  Receipt Date: 20201016
  Transmission Date: 20210114
  Serious: Yes (Life-Threatening, Hospitalization, Other)
  Sender: FDA-Public Use
  Company Number: US-ASTRAZENECA-2020SF30434

PATIENT
  Age: 738 Month
  Sex: Male

DRUGS (7)
  1. NANOLIPOSOMAL IRINOTECAN [Concomitant]
     Active Substance: IRINOTECAN
     Dates: start: 20200817, end: 20200817
  2. FLUOROURACIL. [Concomitant]
     Active Substance: FLUOROURACIL
     Dates: start: 20200817, end: 20200817
  3. LEUCOVORIN. [Concomitant]
     Active Substance: LEUCOVORIN
     Dates: start: 20200817, end: 20200817
  4. GEMCITABINE. [Concomitant]
     Active Substance: GEMCITABINE
  5. IMFINZI [Suspect]
     Active Substance: DURVALUMAB
     Route: 042
  6. GEMZAR [Concomitant]
     Active Substance: GEMCITABINE HYDROCHLORIDE
  7. CISPLATIN. [Concomitant]
     Active Substance: CISPLATIN

REACTIONS (11)
  - Hypovolaemic shock [Unknown]
  - Fall [Unknown]
  - Acute kidney injury [Unknown]
  - Hypotension [Recovering/Resolving]
  - Hemiparesis [Recovering/Resolving]
  - Febrile neutropenia [Recovering/Resolving]
  - Malignant neoplasm progression [Unknown]
  - Haematochezia [Recovering/Resolving]
  - Diarrhoea [Recovering/Resolving]
  - Sepsis [Unknown]
  - Leukocytosis [Recovering/Resolving]

NARRATIVE: CASE EVENT DATE: 202005
